FAERS Safety Report 17647423 (Version 2)
Quarter: 2020Q3

REPORT INFORMATION
  Report Type: Report from Study
  Country: US (occurrence: US)
  Receive Date: 20200408
  Receipt Date: 20200731
  Transmission Date: 20201102
  Serious: Yes (Other)
  Sender: FDA-Public Use
  Company Number: US-MYLANLABS-2020M1034905

PATIENT
  Sex: Female
  Weight: 64 kg

DRUGS (1)
  1. GLATIRAMER ACETATE INJECTION [Suspect]
     Active Substance: GLATIRAMER ACETATE
     Indication: RELAPSING-REMITTING MULTIPLE SCLEROSIS
     Dosage: 3X PER WEEK
     Route: 058
     Dates: start: 202003

REACTIONS (4)
  - Injection site swelling [Not Recovered/Not Resolved]
  - Drug ineffective [Unknown]
  - Injection site pain [Unknown]
  - Injection site pruritus [Not Recovered/Not Resolved]
